FAERS Safety Report 5963993-7 (Version None)
Quarter: 2008Q4

REPORT INFORMATION
  Report Type: 
  Country: None (occurrence: None)
  Receive Date: 20081124
  Receipt Date: 20081111
  Transmission Date: 20090506
  Serious: Yes (Death)
  Sender: FDA-Public Use
  Company Number: AU-ELI_LILLY_AND_COMPANY-AU200811002061

PATIENT
  Sex: Female

DRUGS (2)
  1. CYMBALTA [Suspect]
     Dosage: 60 MG, DAILY (1/D)
     Route: 065
     Dates: start: 20081022, end: 20081108
  2. MOCLOBEMIDE [Concomitant]
     Dosage: UNK, UNKNOWN
     Route: 065
     Dates: end: 20081022

REACTIONS (4)
  - DEATH [None]
  - DIARRHOEA [None]
  - NAUSEA [None]
  - VOMITING [None]
